FAERS Safety Report 10894924 (Version 2)
Quarter: 2015Q1

REPORT INFORMATION
  Report Type: Spontaneous
  Country: US (occurrence: US)
  Receive Date: 20150306
  Receipt Date: 20150313
  Transmission Date: 20150721
  Serious: No
  Sender: FDA-Public Use
  Company Number: US-GLAXOSMITHKLINE-US2015GSK007068

PATIENT
  Sex: Female

DRUGS (1)
  1. TANZEUM [Suspect]
     Active Substance: ALBIGLUTIDE
     Indication: TYPE 2 DIABETES MELLITUS
     Dosage: 30 MG, WE
     Route: 065
     Dates: start: 20141223

REACTIONS (5)
  - Injection site bruising [Unknown]
  - Incorrect dose administered [Unknown]
  - Injection site laceration [Unknown]
  - Product quality issue [Unknown]
  - Injection site pain [Unknown]
